FAERS Safety Report 8849208 (Version 1)
Quarter: 2012Q4

REPORT INFORMATION
  Report Type: 
  Country: US (occurrence: US)
  Receive Date: 20121019
  Receipt Date: 20121019
  Transmission Date: 20130627
  Serious: Yes (Disabling, Other)
  Sender: FDA-Public Use
  Company Number: US-ELI_LILLY_AND_COMPANY-US201210003409

PATIENT
  Age: 42 Year
  Sex: Female

DRUGS (7)
  1. CYMBALTA [Suspect]
     Indication: ANXIETY
     Dosage: 120 mg, UNK
     Dates: end: 201209
  2. CYMBALTA [Suspect]
     Dosage: 60 mg, UNK
     Dates: start: 201209
  3. CYMBALTA [Suspect]
     Dosage: 30 mg, UNK
  4. NEURONTIN [Concomitant]
  5. MOTRIN [Concomitant]
  6. ADVIL /00109201/ [Concomitant]
  7. ALPRAZOLAM [Concomitant]

REACTIONS (12)
  - Facial bones fracture [Unknown]
  - Facial bones fracture [Unknown]
  - Fall [Unknown]
  - Gait disturbance [Unknown]
  - Drug withdrawal syndrome [Not Recovered/Not Resolved]
  - Confusional state [Not Recovered/Not Resolved]
  - Drug withdrawal headache [Not Recovered/Not Resolved]
  - Feeling abnormal [Not Recovered/Not Resolved]
  - Disturbance in attention [Not Recovered/Not Resolved]
  - Fatigue [Not Recovered/Not Resolved]
  - Nausea [Not Recovered/Not Resolved]
  - Arthropathy [Unknown]
